FAERS Safety Report 23657644 (Version 4)
Quarter: 2024Q2

REPORT INFORMATION
  Report Type: Spontaneous
  Country: US (occurrence: US)
  Receive Date: 20240321
  Receipt Date: 20240624
  Transmission Date: 20240715
  Serious: No
  Sender: FDA-Public Use
  Company Number: US-PFIZER INC-202400067090

PATIENT
  Age: 55 Year
  Sex: Female
  Weight: 82.55 kg

DRUGS (1)
  1. PREMARIN [Suspect]
     Active Substance: ESTROGENS, CONJUGATED
     Indication: Vulvovaginal dryness
     Dosage: ^30 GM ONCE^
     Dates: start: 20240226, end: 20240301

REACTIONS (5)
  - Drug hypersensitivity [Unknown]
  - Vulvovaginal swelling [Recovering/Resolving]
  - Vulvovaginal burning sensation [Unknown]
  - Vulvovaginal pain [Unknown]
  - Vulvovaginal discomfort [Unknown]

NARRATIVE: CASE EVENT DATE: 20240201
